FAERS Safety Report 6669455-6 (Version None)
Quarter: 2010Q2

REPORT INFORMATION
  Report Type: 
  Country: None (occurrence: None)
  Receive Date: 20100406
  Receipt Date: 20100325
  Transmission Date: 20101027
  Serious: Yes (Congenital Anomaly)
  Sender: FDA-Public Use
  Company Number: PHHY2009DK11860

PATIENT

DRUGS (1)
  1. OXCARBAZEPINE [Suspect]
     Dosage: MATERNAL DOSE 1650 MG/DAY

REACTIONS (3)
  - ANAL ATRESIA [None]
  - DEAFNESS [None]
  - DRUG EXPOSURE DURING PREGNANCY [None]
